FAERS Safety Report 6607726-X (Version None)
Quarter: 2010Q1

REPORT INFORMATION
  Report Type: 
  Country: None (occurrence: None)
  Receive Date: 20100301
  Receipt Date: 20100223
  Transmission Date: 20100710
  Serious: Yes (Hospitalization)
  Sender: FDA-Public Use
  Company Number: CA-JNJFOC-20090501496

PATIENT
  Sex: Female

DRUGS (13)
  1. REMICADE [Suspect]
     Indication: PSORIATIC ARTHROPATHY
     Route: 042
  2. REMICADE [Suspect]
     Route: 042
  3. REMICADE [Suspect]
     Route: 042
  4. REMICADE [Suspect]
     Route: 042
  5. REMICADE [Suspect]
     Indication: PSORIASIS
     Route: 042
  6. REMICADE [Suspect]
     Route: 042
  7. REMICADE [Suspect]
     Route: 042
  8. REMICADE [Suspect]
     Route: 042
  9. CARBOPLATIN [Suspect]
     Indication: MEDICATION ERROR
  10. CRESTOR NOS [Concomitant]
     Route: 048
  11. VENLAFAXINE [Concomitant]
     Route: 048
  12. CALCIUM AND VITAMIN D [Concomitant]
     Route: 048
  13. ISONIAZID [Concomitant]
     Route: 048

REACTIONS (7)
  - CHEST PAIN [None]
  - CONSTIPATION [None]
  - DYSGEUSIA [None]
  - DYSPEPSIA [None]
  - FATIGUE [None]
  - NAUSEA [None]
  - WRONG DRUG ADMINISTERED [None]
